FAERS Safety Report 13675496 (Version 2)
Quarter: 2017Q2

REPORT INFORMATION
  Report Type: Spontaneous
  Country: GB (occurrence: GB)
  Receive Date: 20170621
  Receipt Date: 20170626
  Transmission Date: 20170830
  Serious: Yes (Hospitalization)
  Sender: FDA-Public Use
  Company Number: PHFR2017GB004592

PATIENT
  Age: 18 Year
  Weight: 125.5 kg

DRUGS (2)
  1. ESTRADIOL. [Suspect]
     Active Substance: ESTRADIOL
     Indication: TRANSGENDER HORMONAL THERAPY
     Dosage: 1 MG, QD
     Route: 048
     Dates: start: 20160511, end: 20170316
  2. TRIPTORELIN ACETATE [Concomitant]
     Active Substance: TRIPTORELIN ACETATE
     Indication: PRODUCT USED FOR UNKNOWN INDICATION
     Route: 065
     Dates: start: 201703

REACTIONS (3)
  - Nephrotic syndrome [Not Recovered/Not Resolved]
  - Generalised oedema [Unknown]
  - Vomiting [Unknown]

NARRATIVE: CASE EVENT DATE: 201702
